FAERS Safety Report 8575783-X (Version None)
Quarter: 2012Q3

REPORT INFORMATION
  Report Type: 
  Country: None (occurrence: None)
  Receive Date: 20120807
  Receipt Date: 20120730
  Transmission Date: 20120928
  Serious: Yes (Other)
  Sender: FDA-Public Use
  Company Number: DE-US-EMD SERONO, INC.-7149774

PATIENT
  Age: 54 Year
  Sex: Male

DRUGS (11)
  1. REBIF [Suspect]
     Indication: MULTIPLE SCLEROSIS
     Route: 058
     Dates: start: 20080401
  2. GABAPENTIN [Concomitant]
     Indication: NEURALGIA
     Route: 048
     Dates: start: 20090901, end: 20091101
  3. ESCITALOPRAM [Concomitant]
     Indication: DEPRESSION
     Route: 048
     Dates: start: 20080701, end: 20090301
  4. EDRONAX [Concomitant]
     Indication: DEPRESSION
     Route: 048
     Dates: start: 20090301, end: 20100101
  5. DOXEPIN [Suspect]
     Route: 048
     Dates: start: 20081101
  6. DOXEPIN [Suspect]
     Indication: INSOMNIA
     Route: 048
     Dates: end: 20081101
  7. BERODUAL [Concomitant]
     Indication: ASTHMA
     Dosage: PUFF
  8. REBIF [Suspect]
     Route: 058
     Dates: start: 20080201, end: 20080401
  9. SYMBICORT [Concomitant]
     Indication: ASTHMA
     Dosage: PUFF
  10. DOXEPIN [Suspect]
     Indication: DEPRESSION
     Route: 048
     Dates: start: 20080801
  11. DOXEPIN [Suspect]
     Route: 048
     Dates: end: 20110201

REACTIONS (5)
  - WEIGHT INCREASED [None]
  - HYPERTENSION [None]
  - MULTIPLE SCLEROSIS RELAPSE [None]
  - ANGINA PECTORIS [None]
  - INSOMNIA [None]
